FAERS Safety Report 8011766-6 (Version None)
Quarter: 2011Q4

REPORT INFORMATION
  Report Type: 
  Country: None (occurrence: None)
  Receive Date: 20111228
  Receipt Date: 20111024
  Transmission Date: 20120403
  Serious: Yes (Hospitalization)
  Sender: FDA-Public Use
  Company Number: PHHY2011ES111998

PATIENT
  Age: 75 Year
  Sex: Male
  Weight: 72 kg

DRUGS (2)
  1. EPIRUBICIN [Concomitant]
     Indication: OESOPHAGEAL CARCINOMA
     Dosage: 100 ML, UNK
     Route: 042
     Dates: start: 20110407, end: 20110602
  2. FLUOROURACIL [Suspect]
     Indication: OESOPHAGEAL CARCINOMA
     Dosage: 2520 MG, UNK
     Route: 042
     Dates: start: 20110407, end: 20110602

REACTIONS (3)
  - NEUROTOXICITY [None]
  - MUCOSAL INFLAMMATION [None]
  - HEPATOTOXICITY [None]
